FAERS Safety Report 9462999 (Version 2)
Quarter: 2013Q3

REPORT INFORMATION
  Report Type: Spontaneous
  Country: ES (occurrence: ES)
  Receive Date: 20130816
  Receipt Date: 20130816
  Transmission Date: 20140515
  Serious: Yes (Hospitalization)
  Sender: FDA-Public Use
  Company Number: PHHY2013ES003006

PATIENT
  Age: 71 Year
  Sex: Female

DRUGS (4)
  1. LISINOPRIL+HCT [Suspect]
     Dosage: 1 DF, PER DAY
  2. CALCITRIOL [Suspect]
     Dosage: 1 UG, PER DAY
  3. CALCIUM CARBONATE [Suspect]
     Dosage: 900 MG, PER DAY
  4. LEVOTHYROXINE [Concomitant]
     Dosage: 100 UG, PER DAY

REACTIONS (10)
  - Milk-alkali syndrome [Unknown]
  - Nocturia [Unknown]
  - Polyuria [Unknown]
  - Nervousness [Unknown]
  - Fatigue [Unknown]
  - Insomnia [Unknown]
  - Headache [Unknown]
  - Metabolic alkalosis [Unknown]
  - Renal failure [Recovering/Resolving]
  - Hypercalcaemia [Recovering/Resolving]
